FAERS Safety Report 16864543 (Version 2)
Quarter: 2019Q3

REPORT INFORMATION
  Report Type: Report from Study
  Country: BR (occurrence: BR)
  Receive Date: 20190928
  Receipt Date: 20190928
  Transmission Date: 20191005
  Serious: Yes (Other)
  Sender: FDA-Public Use
  Company Number: PHHY2019BR223620

PATIENT
  Sex: Male

DRUGS (4)
  1. ENALAPRIL [Suspect]
     Active Substance: ENALAPRIL
     Indication: PRODUCT USED FOR UNKNOWN INDICATION
     Route: 065
  2. ENTRESTO [Suspect]
     Active Substance: SACUBITRIL\VALSARTAN
     Indication: CARDIAC FAILURE CHRONIC
     Dosage: 1 DF (SACUBITRIL 24 MG/ VALSARTAN 26 MG),  UNK
     Route: 065
     Dates: start: 20190901
  3. HYDROCHLOROTHIAZIDE. [Concomitant]
     Active Substance: HYDROCHLOROTHIAZIDE
     Indication: PRODUCT USED FOR UNKNOWN INDICATION
     Route: 065
  4. SPIRONOLACTONE. [Concomitant]
     Active Substance: SPIRONOLACTONE
     Indication: DIURETIC THERAPY
     Route: 065

REACTIONS (13)
  - Myocardial infarction [Unknown]
  - Vasodilatation [Unknown]
  - Orthostatic hypotension [Unknown]
  - Fatigue [Not Recovered/Not Resolved]
  - Gene mutation [Unknown]
  - General physical condition decreased [Unknown]
  - Blood glucose increased [Unknown]
  - Blood pressure decreased [Unknown]
  - Thrombosis [Unknown]
  - Coronary artery thrombosis [Unknown]
  - Anxiety [Unknown]
  - Dizziness [Unknown]
  - Drug ineffective [Unknown]
